FAERS Safety Report 15767440 (Version 3)
Quarter: 2019Q2

REPORT INFORMATION
  Report Type: Spontaneous
  Country: JP (occurrence: JP)
  Receive Date: 20181227
  Receipt Date: 20190605
  Transmission Date: 20190711
  Serious: Yes (Hospitalization)
  Sender: FDA-Public Use
  Company Number: JP-ASTRAZENECA-2018SF70505

PATIENT
  Age: 23021 Day
  Sex: Male
  Weight: 43 kg

DRUGS (4)
  1. IMFINZI [Suspect]
     Active Substance: DURVALUMAB
     Indication: NON-SMALL CELL LUNG CANCER
     Route: 041
     Dates: start: 20181026, end: 20181112
  2. IMFINZI [Suspect]
     Active Substance: DURVALUMAB
     Indication: NON-SMALL CELL LUNG CANCER
     Route: 041
     Dates: start: 20181207, end: 20190218
  3. EPADEL [Concomitant]
     Active Substance: ICOSAPENT
     Indication: SUPERIOR VENA CAVA SYNDROME
     Route: 048
     Dates: start: 20181112, end: 20181209
  4. IMFINZI [Suspect]
     Active Substance: DURVALUMAB
     Indication: NON-SMALL CELL LUNG CANCER
     Route: 041
     Dates: start: 20190513

REACTIONS (5)
  - Hypothyroidism [Not Recovered/Not Resolved]
  - Pleurisy [Recovered/Resolved]
  - Radiation pneumonitis [Not Recovered/Not Resolved]
  - Atrial fibrillation [Recovered/Resolved]
  - Lung disorder [Recovered/Resolved]

NARRATIVE: CASE EVENT DATE: 20181122
